FAERS Safety Report 8113064-9 (Version None)
Quarter: 2012Q1

REPORT INFORMATION
  Report Type: 
  Country: None (occurrence: None)
  Receive Date: 20120203
  Receipt Date: 20120126
  Transmission Date: 20120608
  Serious: Yes (Hospitalization)
  Sender: FDA-Public Use
  Company Number: JP-GLAXOSMITHKLINE-B0577968A

PATIENT
  Sex: Female

DRUGS (8)
  1. OMEPRAZOLE [Concomitant]
     Dosage: 20MG PER DAY
     Route: 048
  2. THEO-DUR [Concomitant]
     Indication: ASTHMA
     Dosage: 200MG PER DAY
     Route: 048
  3. PREDNISOLONE [Concomitant]
     Indication: ASTHMA
     Dosage: 10MG PER DAY
     Route: 048
  4. PREDNISOLONE [Concomitant]
     Indication: ASTHMA
     Dosage: 20MG PER DAY
     Route: 048
  5. ALENDRONATE SODIUM [Concomitant]
     Dosage: 5MG PER DAY
     Route: 048
  6. NORVASC [Concomitant]
     Dosage: 5MG PER DAY
     Route: 048
  7. FLUTICASONE PROPIONATE/SALMETEROL [Suspect]
     Indication: ASTHMA
     Dosage: 1000MCG PER DAY
     Route: 055
     Dates: start: 20080702
  8. CELECOXIB [Concomitant]
     Dosage: 200MG PER DAY
     Route: 048
     Dates: start: 20090218

REACTIONS (1)
  - ASTHMA [None]
